FAERS Safety Report 11369793 (Version 1)
Quarter: 2015Q3

REPORT INFORMATION
  Report Type: Spontaneous
  Country: US (occurrence: US)
  Receive Date: 20150812
  Receipt Date: 20150812
  Transmission Date: 20151125
  Serious: Yes (Hospitalization, Other)
  Sender: FDA-Public Use
  Company Number: US-JNJFOC-20150709598

PATIENT
  Age: 47 Year
  Sex: Male
  Weight: 91.7 kg

DRUGS (1)
  1. INVOKANA [Suspect]
     Active Substance: CANAGLIFLOZIN
     Indication: TYPE 2 DIABETES MELLITUS
     Route: 065
     Dates: start: 20150510

REACTIONS (3)
  - Device related infection [Unknown]
  - Scrotal abscess [Unknown]
  - Staphylococcal bacteraemia [Unknown]

NARRATIVE: CASE EVENT DATE: 20150510
